FAERS Safety Report 5691764-8 (Version None)
Quarter: 2008Q2

REPORT INFORMATION
  Report Type: 
  Country: None (occurrence: None)
  Receive Date: 20080401
  Receipt Date: 20080401
  Transmission Date: 20081010
  Serious: Yes (Disabling, Other)
  Sender: FDA-Public Use
  Company Number: None

PATIENT
  Age: 8 Year
  Sex: Female
  Weight: 24.0406 kg

DRUGS (3)
  1. SINGULAIR [Suspect]
     Indication: URTICARIA
     Dosage: 5MG? ONCE A DAY PO
     Route: 048
     Dates: start: 20050901, end: 20060715
  2. CLARINEX [Concomitant]
  3. CLONIDINE HCL [Concomitant]

REACTIONS (6)
  - ATTENTION DEFICIT/HYPERACTIVITY DISORDER [None]
  - DEPRESSION [None]
  - MANIA [None]
  - NO THERAPEUTIC RESPONSE [None]
  - PSYCHOMOTOR HYPERACTIVITY [None]
  - SUICIDAL IDEATION [None]
